FAERS Safety Report 4957226-8 (Version None)
Quarter: 2006Q1

REPORT INFORMATION
  Report Type: 
  Country: None (occurrence: None)
  Receive Date: 20060329
  Receipt Date: 20050308
  Transmission Date: 20060701
  Serious: Yes (Hospitalization, Other)
  Sender: FDA-Public Use
  Company Number: DE-MERCK-0503DEU00072

PATIENT
  Age: 78 Year
  Sex: Male
  Weight: 120 kg

DRUGS (2)
  1. VIOXX [Suspect]
     Indication: OSTEOARTHRITIS
     Route: 048
     Dates: start: 20000301, end: 20041001
  2. VIOXX [Suspect]
     Route: 048
     Dates: start: 20000301, end: 20041001

REACTIONS (8)
  - ARTHRALGIA [None]
  - CORONARY ARTERY DISEASE [None]
  - CORONARY ARTERY STENOSIS [None]
  - EPISTAXIS [None]
  - HAEMORRHOIDAL HAEMORRHAGE [None]
  - NEPHROSCLEROSIS [None]
  - PANCYTOPENIA [None]
  - RENAL FAILURE CHRONIC [None]
